FAERS Safety Report 6963406-2 (Version None)
Quarter: 2010Q3

REPORT INFORMATION
  Report Type: 
  Country: None (occurrence: None)
  Receive Date: 20100902
  Receipt Date: 20100825
  Transmission Date: 20110219
  Serious: Yes (Hospitalization)
  Sender: FDA-Public Use
  Company Number: A0878832A

PATIENT
  Age: 53 Year
  Sex: Female

DRUGS (1)
  1. AVANDIA [Suspect]
     Dates: start: 20060220, end: 20060419

REACTIONS (2)
  - RENAL DISORDER [None]
  - RENAL TRANSPLANT [None]
